FAERS Safety Report 14227091 (Version 2)
Quarter: 2019Q4

REPORT INFORMATION
  Report Type: Spontaneous
  Country: FR (occurrence: FR)
  Receive Date: 20171127
  Receipt Date: 20191216
  Transmission Date: 20200122
  Serious: Yes (Death, Congenital Anomaly)
  Sender: FDA-Public Use
  Company Number: FR-TEVA-2017-FR-826603

PATIENT
  Age: 0 Year
  Sex: Female

DRUGS (1)
  1. MODIODAL 100 MG [Suspect]
     Active Substance: MODAFINIL
     Indication: NARCOLEPSY
     Dosage: 300 MILLIGRAM DAILY;
     Route: 064
     Dates: start: 20170421, end: 20170510

REACTIONS (4)
  - Congenital hydrocephalus [Fatal]
  - Arnold-Chiari malformation [Fatal]
  - Foetal exposure during pregnancy [Unknown]
  - Craniorachischisis [Fatal]

NARRATIVE: CASE EVENT DATE: 20170915
